FAERS Safety Report 7058251-6 (Version None)
Quarter: 2010Q4

REPORT INFORMATION
  Report Type: 
  Country: None (occurrence: None)
  Receive Date: 20101022
  Receipt Date: 20101018
  Transmission Date: 20110411
  Serious: Yes (Hospitalization)
  Sender: FDA-Public Use
  Company Number: US-PFIZER INC-2010133610

PATIENT
  Sex: Male

DRUGS (14)
  1. HEPARIN SODIUM [Suspect]
     Indication: PULMONARY EMBOLISM
     Dosage: UNK
     Route: 042
     Dates: end: 20101016
  2. WARFARIN [Suspect]
     Dosage: 5 MG, UNK
     Dates: start: 20101015
  3. ACETYLSALICYLIC ACID [Concomitant]
  4. CARDIZEM [Concomitant]
  5. PROZAC [Concomitant]
  6. LASIX [Concomitant]
  7. TOPROL-XL [Concomitant]
  8. PRAVASTATIN [Concomitant]
  9. VICODIN [Concomitant]
  10. LANTUS [Concomitant]
  11. IMDUR [Concomitant]
  12. SYNTHROID [Concomitant]
  13. PRILOSEC [Concomitant]
  14. OXACILLIN [Concomitant]

REACTIONS (2)
  - BLOOD BILIRUBIN INCREASED [None]
  - HEPARIN-INDUCED THROMBOCYTOPENIA [None]
